FAERS Safety Report 8987896 (Version 1)
Quarter: 2012Q4

REPORT INFORMATION
  Report Type: 
  Country: GB (occurrence: GB)
  Receive Date: 20121227
  Receipt Date: 20121227
  Transmission Date: 20130627
  Serious: Yes (Life-Threatening, Hospitalization)
  Sender: FDA-Public Use
  Company Number: GB-GLAXOSMITHKLINE-B0854489A

PATIENT
  Age: 6 Month
  Sex: Female
  Weight: 7.99 kg

DRUGS (5)
  1. RANITIDINE [Suspect]
     Dosage: 32MG Per day
     Route: 048
     Dates: start: 20121123
  2. RANITIDINE [Suspect]
     Dosage: 60MG Per day
     Route: 048
     Dates: start: 20121129, end: 20121203
  3. SYNACTHEN DEPOT [Concomitant]
     Indication: INFANTILE SPASMS
     Route: 030
  4. VIGABATRIN [Concomitant]
     Indication: INFANTILE SPASMS
     Route: 048
  5. LACTULOSE [Concomitant]

REACTIONS (3)
  - Bradycardia [Recovered/Resolved]
  - Irritability [Unknown]
  - Pallor [Unknown]
